FAERS Safety Report 8193175-2 (Version None)
Quarter: 2012Q1

REPORT INFORMATION
  Report Type: 
  Country: None (occurrence: None)
  Receive Date: 20120223
  Receipt Date: 20110316
  Transmission Date: 20120608
  Serious: Yes (Other)
  Sender: FDA-Public Use
  Company Number: WAES 1103USA02198

PATIENT
  Age: 55 Year
  Sex: Male

DRUGS (5)
  1. METFORMIN HCL [Concomitant]
  2. ZOCOR [Suspect]
     Dosage: PO
     Route: 048
  3. NIASPAN [Concomitant]
  4. VICTOZA [Concomitant]
  5. HYDROCHLOROTHIAZIDE [Concomitant]

REACTIONS (1)
  - PANCREATITIS ACUTE [None]
